FAERS Safety Report 13525000 (Version 1)
Quarter: 2017Q2

REPORT INFORMATION
  Report Type: Spontaneous
  Country: US (occurrence: US)
  Receive Date: 20170508
  Receipt Date: 20170508
  Transmission Date: 20170830
  Serious: Yes (Other)
  Sender: FDA-Public Use
  Company Number: US-ROCHE-1127782

PATIENT
  Age: 61 Year
  Sex: Female

DRUGS (3)
  1. NEULASTA [Concomitant]
     Active Substance: PEGFILGRASTIM
     Route: 065
     Dates: start: 200602
  2. AVASTIN [Suspect]
     Active Substance: BEVACIZUMAB
     Indication: BREAST CANCER FEMALE
     Route: 065
  3. ABRAXANE [Concomitant]
     Active Substance: PACLITAXEL
     Route: 065
     Dates: start: 200602

REACTIONS (1)
  - Proteinuria [Unknown]

NARRATIVE: CASE EVENT DATE: 200606
